FAERS Safety Report 7042984-1 (Version None)
Quarter: 2010Q4

REPORT INFORMATION
  Report Type: 
  Country: None (occurrence: None)
  Receive Date: 20101013
  Receipt Date: 20100927
  Transmission Date: 20110411
  Serious: Yes (Death, Hospitalization, Other)
  Sender: FDA-Public Use
  Company Number: PHEH2006US01254

PATIENT
  Sex: Female
  Weight: 76.19 kg

DRUGS (24)
  1. AREDIA [Suspect]
     Indication: METASTASES TO BONE
     Dosage: UNK,UNK
     Route: 042
     Dates: start: 20020101, end: 20021106
  2. ZOMETA [Suspect]
     Indication: METASTASES TO BONE
     Dosage: UNK,UNK
     Route: 042
     Dates: start: 20021204, end: 20050624
  3. ARIMIDEX [Concomitant]
     Indication: BREAST CANCER
     Dosage: 1 MG, QD
     Route: 048
  4. VIOXX [Concomitant]
     Indication: MUSCULOSKELETAL PAIN
     Dosage: 25 MG, QD
     Route: 048
  5. CELEXA [Concomitant]
     Dosage: 40 MG, QD
     Route: 048
  6. AMITRIPTYLINE [Concomitant]
     Dosage: 50 MG, QD
     Route: 048
  7. ZOCOR [Concomitant]
     Dosage: 40 MG, QD
     Route: 048
  8. DIOVAN [Concomitant]
     Dosage: 80/12.5
     Route: 048
  9. HYDROCHLOROTHIAZIDE [Concomitant]
     Dosage: 25 MG, QD
     Route: 048
  10. MS CONTIN [Concomitant]
     Dosage: 15 MG, BID
     Route: 048
  11. EFFEXOR [Concomitant]
  12. ZOLADEX [Concomitant]
     Indication: BREAST CANCER
  13. FLUOROURACIL [Concomitant]
  14. ADRIAMYCIN PFS [Concomitant]
  15. CYTOXAN [Concomitant]
  16. TAXOTERE [Concomitant]
  17. EPIRUBICIN [Concomitant]
  18. FASLODEX [Concomitant]
  19. TAXOL [Concomitant]
  20. GLUCOSAMINE SULFATE W/CHONDROITIN [Concomitant]
  21. NAPROXEN [Concomitant]
  22. POTASSIUM [Concomitant]
  23. METOPROLOL [Concomitant]
  24. PROTONIX [Concomitant]

REACTIONS (48)
  - ABDOMINAL PAIN [None]
  - ASTHENIA [None]
  - ATELECTASIS [None]
  - AURICULAR PERICHONDRITIS [None]
  - BONE DISORDER [None]
  - BONE LESION [None]
  - BRONCHITIS CHRONIC [None]
  - CACHEXIA [None]
  - CARDIAC FAILURE CONGESTIVE [None]
  - CARDIAC VALVE DISEASE [None]
  - CENTRAL VENOUS CATHETER REMOVAL [None]
  - CENTRAL VENOUS CATHETERISATION [None]
  - COMPUTERISED TOMOGRAM [None]
  - DEATH [None]
  - DECREASED APPETITE [None]
  - DEVICE RELATED INFECTION [None]
  - DIVERTICULUM INTESTINAL [None]
  - DYSPNOEA [None]
  - EXOSTOSIS [None]
  - EXPLORATIVE LAPAROTOMY [None]
  - GASTRITIS [None]
  - GASTROSTOMY TUBE INSERTION [None]
  - GINGIVAL ABSCESS [None]
  - GINGIVAL DISORDER [None]
  - GINGIVAL PAIN [None]
  - GOITRE [None]
  - INTERVERTEBRAL DISC DEGENERATION [None]
  - INTERVERTEBRAL DISC PROTRUSION [None]
  - LUNG INFILTRATION [None]
  - LYMPHADENOPATHY [None]
  - MALIGNANT NEOPLASM PROGRESSION [None]
  - MALNUTRITION [None]
  - METASTASES TO BONE [None]
  - MOUTH ULCERATION [None]
  - NASAL MUCOSAL DISORDER [None]
  - OESOPHAGITIS [None]
  - OOPHORECTOMY [None]
  - OSTEONECROSIS OF JAW [None]
  - PERICARDITIS CONSTRICTIVE [None]
  - PLEURAL EFFUSION [None]
  - PNEUMONIA [None]
  - PRIMARY SEQUESTRUM [None]
  - RASH PAPULAR [None]
  - RESPIRATORY TRACT INFECTION [None]
  - SINUS TACHYCARDIA [None]
  - SYNOVIAL CYST [None]
  - UTERINE LEIOMYOMA [None]
  - WEIGHT DECREASED [None]
